FAERS Safety Report 9269281 (Version 1)
Quarter: 2013Q2

REPORT INFORMATION
  Report Type: Spontaneous
  Country: US (occurrence: US)
  Receive Date: 20130503
  Receipt Date: 20130503
  Transmission Date: 20140414
  Serious: No
  Sender: FDA-Public Use
  Company Number: US-PFIZER INC-2013136942

PATIENT
  Age: 69 Year
  Sex: Female

DRUGS (7)
  1. EFFEXOR XR [Suspect]
     Indication: DEPRESSION
     Dosage: 37.5 MG, 1X/DAY
     Dates: start: 20130415, end: 201304
  2. WELLBUTRIN SR [Suspect]
     Indication: ANXIETY
     Dosage: 100 MG, 1X/DAY
     Dates: start: 20130320, end: 20130327
  3. WELLBUTRIN SR [Suspect]
     Indication: DEPRESSION
  4. SYNTHROID [Concomitant]
     Indication: THYROID DISORDER
     Dosage: 0.125 MG, 1X/DAY
  5. PRAVASTATIN [Concomitant]
     Indication: BLOOD CHOLESTEROL INCREASED
     Dosage: 40 MG, 1X/DAY
  6. VITAMIN C [Concomitant]
     Dosage: UNK
  7. VITAMIN D [Concomitant]
     Dosage: UNK

REACTIONS (1)
  - Rash [Recovering/Resolving]
